FAERS Safety Report 8770429 (Version 2)
Quarter: 2012Q4

REPORT INFORMATION
  Report Type: 
  Country: FI (occurrence: FI)
  Receive Date: 20120907
  Receipt Date: 20120911
  Transmission Date: 20130627
  Serious: Yes (Hospitalization, Other)
  Sender: FDA-Public Use
  Company Number: PHHY2012FI075634

PATIENT
  Age: 53 Year
  Sex: Male

DRUGS (13)
  1. LEPONEX [Suspect]
     Indication: SCHIZOPHRENIA
     Dosage: 600 mg,
  2. LEPONEX [Suspect]
     Dosage: 500 mg
  3. LEPONEX [Suspect]
     Dosage: 550 mg, per day
  4. SEROQUEL [Concomitant]
     Dosage: 800 mg
  5. ABILIFY [Concomitant]
     Dosage: 30 mg
  6. EMCONCOR [Concomitant]
     Indication: TACHYCARDIA
  7. ATACAND [Concomitant]
     Indication: HYPERTENSION
  8. LAMOTRIGIN [Concomitant]
     Dosage: 25 mg, UNK
  9. TRILEPTAL [Concomitant]
     Indication: EPILEPSY
  10. TRILEPTAL [Concomitant]
     Dosage: 300 mg, per day
  11. QUETIAPINE [Concomitant]
     Dosage: 800 mg, per day
  12. ARIPIPRAZOLE [Concomitant]
     Dosage: 30 mg, per day
  13. LAMICTAL [Concomitant]
     Dosage: 100 mg, per day

REACTIONS (2)
  - Aggression [Unknown]
  - Antipsychotic drug level increased [Unknown]
